FAERS Safety Report 6120566-3 (Version None)
Quarter: 2009Q1

REPORT INFORMATION
  Report Type: 
  Country: None (occurrence: None)
  Receive Date: 20090313
  Receipt Date: 20090310
  Transmission Date: 20090719
  Serious: Yes (Life-Threatening)
  Sender: FDA-Public Use
  Company Number: GXKR2009DE02928

PATIENT
  Age: 66 Year
  Sex: Male
  Weight: 82 kg

DRUGS (7)
  1. AMLODIPINE [Suspect]
     Indication: HYPERTENSION
     Dosage: 5 MG, QD, ORAL
     Route: 048
     Dates: start: 20090104, end: 20090219
  2. METOPROLOL (NGX) (METOPROLOL) TABLET, 50MG [Suspect]
     Indication: HYPERTENSION
     Dosage: 50 MG, QD, ORAL
     Route: 048
  3. RAMIPRIL/HYDROCHLOORTHIAZIDE (NGX)(HYDROCHLOROTHIAZIDE, RAMIPRIL) TABL [Suspect]
     Indication: HYPERTENSION
     Dosage: 5 MG, QD, ORAL
     Route: 048
  4. AMARYL [Concomitant]
  5. ACETYLSALICYLIC ACID SRT [Concomitant]
  6. PANCREATIN TRIPLE STRENGTH CAP [Concomitant]
  7. SIMVASTATIN [Concomitant]

REACTIONS (1)
  - ATRIOVENTRICULAR BLOCK SECOND DEGREE [None]
